FAERS Safety Report 25920097 (Version 1)
Quarter: 2025Q4

REPORT INFORMATION
  Report Type: Spontaneous
  Country: US (occurrence: US)
  Receive Date: 20251014
  Receipt Date: 20251014
  Transmission Date: 20260118
  Serious: No
  Sender: BIOMARIN
  Company Number: US-BIOMARINAP-US-2025-169343

PATIENT
  Sex: Female

DRUGS (1)
  1. PALYNZIQ [Suspect]
     Active Substance: PEGVALIASE-PQPZ
     Indication: Phenylketonuria
     Dosage: 2.5 MILLIGRAM, QW
     Dates: start: 20250916

REACTIONS (4)
  - Palpitations [Unknown]
  - Blood pressure increased [Unknown]
  - Flushing [Unknown]
  - Dizziness [Unknown]
